FAERS Safety Report 25550709 (Version 1)
Quarter: 2025Q3

REPORT INFORMATION
  Report Type: Spontaneous
  Country: EU (occurrence: EU)
  Receive Date: 20250714
  Receipt Date: 20250714
  Transmission Date: 20251020
  Serious: Yes (Other)
  Sender: REGENERON
  Company Number: EU-REGENERON PHARMACEUTICALS, INC.-2025-109988

PATIENT
  Age: 77 Year
  Sex: Male

DRUGS (1)
  1. LIBTAYO [Suspect]
     Active Substance: CEMIPLIMAB-RWLC
     Indication: Non-small cell lung cancer stage IIIB
     Dosage: 350 MG, Q3W
     Dates: start: 2023

REACTIONS (2)
  - Immune-mediated cholangitis [Unknown]
  - Pneumonitis [Unknown]
